FAERS Safety Report 23170352 (Version 1)
Quarter: 2023Q4

REPORT INFORMATION
  Report Type: Spontaneous
  Country: JP (occurrence: JP)
  Receive Date: 20231110
  Receipt Date: 20231110
  Transmission Date: 20240110
  Serious: Yes (Other)
  Sender: FDA-Public Use
  Company Number: JP-AMGEN-JPNSP2023173031

PATIENT
  Age: 72 Year
  Sex: Female

DRUGS (5)
  1. OTEZLA [Suspect]
     Active Substance: APREMILAST
     Indication: Psoriasis
     Dosage: 30 MILLIGRAM
     Route: 048
  2. OXAROL [Concomitant]
     Active Substance: MAXACALCITOL
     Dosage: UNK
     Route: 065
  3. LOCOID [Concomitant]
     Active Substance: HYDROCORTISONE BUTYRATE
     Dosage: UNK
     Route: 065
  4. RINDERON VG [Concomitant]
     Active Substance: BETAMETHASONE VALERATE\GENTAMICIN SULFATE
     Dosage: UNK
     Route: 065
  5. FLURANDRENOLIDE [Concomitant]
     Active Substance: FLURANDRENOLIDE
     Dosage: UNK
     Route: 065

REACTIONS (2)
  - Bladder cancer [Unknown]
  - Ill-defined disorder [Unknown]
